FAERS Safety Report 7955344-3 (Version None)
Quarter: 2011Q4

REPORT INFORMATION
  Report Type: 
  Country: None (occurrence: None)
  Receive Date: 20111202
  Receipt Date: 20111121
  Transmission Date: 20120403
  Serious: Yes (Hospitalization, Other)
  Sender: FDA-Public Use
  Company Number: US-ELI_LILLY_AND_COMPANY-US201110001921

PATIENT
  Sex: Female

DRUGS (21)
  1. FORTEO [Suspect]
     Indication: OSTEOPOROSIS
     Dosage: 20 UG, QD
     Route: 065
     Dates: start: 20100101, end: 20110101
  2. GABAPENTIN [Concomitant]
     Indication: TRANSIENT ISCHAEMIC ATTACK
     Dosage: 300 MG, BID
  3. LIPITOR [Concomitant]
     Indication: BLOOD CHOLESTEROL INCREASED
     Dosage: 40 MG, UNK
  4. ZETIA [Concomitant]
     Indication: BLOOD CHOLESTEROL INCREASED
     Dosage: 10 MG, UNK
  5. VENLAFAXINE [Concomitant]
     Indication: ANXIETY
     Dosage: 225 MG, QD
  6. FUROSEMIDE [Concomitant]
     Indication: CARDIAC FAILURE
     Dosage: 60 MG, QD
  7. CINNAMON [Concomitant]
  8. SYNTHROID [Concomitant]
     Indication: HYPOTHYROIDISM
     Dosage: 75 MG, QD
  9. ASPIRIN [Concomitant]
     Indication: CARDIAC FAILURE
     Dosage: 325 MG, QD
  10. FORTEO [Suspect]
     Dosage: 20 UG, QD
     Route: 065
     Dates: end: 20110701
  11. MULTIVITAMIN AND MINERAL [Concomitant]
     Dosage: UNK, QD
  12. KLOR-CON [Concomitant]
     Indication: DIURETIC THERAPY
     Dosage: 20 MEQ, QD
  13. NORCO [Concomitant]
  14. SINGULAIR [Concomitant]
     Indication: MULTIPLE ALLERGIES
     Dosage: 40 MG, QD
  15. POTASSIUM CHLORIDE [Concomitant]
     Indication: DIURETIC THERAPY
  16. LEVOTHYROXINE SODIUM [Concomitant]
     Indication: HYPOTHYROIDISM
  17. CALCIUM CARBONATE [Concomitant]
     Indication: SUPPLEMENTATION THERAPY
  18. TEVETEN [Concomitant]
     Indication: HYPERTENSION
     Dosage: 12.5 MG, UNK
  19. VITAMIN D [Concomitant]
     Indication: BONE DISORDER
     Dosage: UNK, QD
  20. LOVAZA [Concomitant]
     Dosage: UNK, BID
  21. CALCIUM 600 PLUS VITAMIN D [Concomitant]
     Dosage: UNK, BID

REACTIONS (11)
  - MENISCUS LESION [None]
  - BONE DENSITY ABNORMAL [None]
  - FALL [None]
  - OEDEMA PERIPHERAL [None]
  - DRUG DOSE OMISSION [None]
  - BONE DISORDER [None]
  - ARTHRALGIA [None]
  - CONTUSION [None]
  - CARDIAC FAILURE CONGESTIVE [None]
  - FATIGUE [None]
  - INJECTION SITE INDURATION [None]
